FAERS Safety Report 21140428 (Version 2)
Quarter: 2022Q3

REPORT INFORMATION
  Report Type: Spontaneous
  Country: CN (occurrence: CN)
  Receive Date: 20220728
  Receipt Date: 20220802
  Transmission Date: 20221026
  Serious: Yes (Hospitalization, Other)
  Sender: FDA-Public Use
  Company Number: CN-SA-2022SA298986

PATIENT
  Age: 76 Year
  Sex: Male

DRUGS (5)
  1. OXALIPLATIN [Suspect]
     Active Substance: OXALIPLATIN
     Indication: Chemotherapy
     Dosage: 150 MG, INFUSION OVER 1 HOUR
     Dates: start: 20210823
  2. GIMERACIL\OTERACIL\TEGAFUR [Concomitant]
     Active Substance: GIMERACIL\OTERACIL\TEGAFUR
     Indication: Chemotherapy
     Dosage: UNK
     Dates: start: 20210823
  3. DEXAMETHASONE [Concomitant]
     Active Substance: DEXAMETHASONE
  4. DEXAMETHASONE [Concomitant]
     Active Substance: DEXAMETHASONE
     Dates: start: 2021
  5. TROPISETRON HYDROCHLORIDE [Concomitant]
     Active Substance: TROPISETRON HYDROCHLORIDE

REACTIONS (7)
  - Atrioventricular block complete [Recovered/Resolved]
  - Arteriospasm coronary [Recovered/Resolved]
  - Dyspnoea [Recovered/Resolved]
  - Palpitations [Recovered/Resolved]
  - Hyperhidrosis [Recovered/Resolved]
  - Bradycardia [Recovered/Resolved]
  - Arrhythmia [Recovered/Resolved]

NARRATIVE: CASE EVENT DATE: 20210823
